FAERS Safety Report 24825019 (Version 5)
Quarter: 2025Q2

REPORT INFORMATION
  Report Type: Report from Study
  Country: GB (occurrence: GB)
  Receive Date: 20250109
  Receipt Date: 20250521
  Transmission Date: 20250717
  Serious: Yes (Other)
  Sender: NOVARTIS
  Company Number: GB-002147023-NVSC2024GB237196

PATIENT
  Sex: Female

DRUGS (1)
  1. KESIMPTA [Suspect]
     Active Substance: OFATUMUMAB
     Indication: Relapsing-remitting multiple sclerosis
     Dosage: 20 MG, QMO
     Route: 058
     Dates: start: 20240312

REACTIONS (12)
  - Lower respiratory tract infection [Recovered/Resolved]
  - Secretion discharge [Unknown]
  - Sputum purulent [Recovered/Resolved]
  - Body temperature increased [Unknown]
  - Cough [Recovered/Resolved]
  - Productive cough [Recovering/Resolving]
  - Injection site pain [Not Recovered/Not Resolved]
  - Brain fog [Unknown]
  - Memory impairment [Unknown]
  - Pruritus [Unknown]
  - Rash macular [Unknown]
  - Injection site discolouration [Recovered/Resolved]
